FAERS Safety Report 8484654-9 (Version None)
Quarter: 2012Q2

REPORT INFORMATION
  Report Type: 
  Country: None (occurrence: None)
  Receive Date: 20120625
  Receipt Date: 20120608
  Transmission Date: 20120825
  Serious: Yes (Hospitalization, Disabling, Other)
  Sender: FDA-Public Use
  Company Number: 2010MA002489

PATIENT
  Sex: Female
  Weight: 57.6068 kg

DRUGS (34)
  1. CIPROFLOXACIN [Concomitant]
  2. HYDROCODONE [Concomitant]
  3. KEPPRA [Concomitant]
  4. NOVOLOG [Concomitant]
  5. LEVETIRACETAM [Concomitant]
  6. METOCLOPRAMIDE [Suspect]
     Indication: DIABETIC GASTROPARESIS
     Dosage: 10 MG/2ML, Q6H, IV
     Route: 042
     Dates: start: 20000601, end: 20090813
  7. METOCLOPRAMIDE [Suspect]
     Indication: NAUSEA
     Dosage: 10 MG/2ML, Q6H, IV
     Route: 042
     Dates: start: 20000601, end: 20090813
  8. METOCLOPRAMIDE [Suspect]
     Indication: VOMITING
     Dosage: 10 MG/2ML, Q6H, IV
     Route: 042
     Dates: start: 20000601, end: 20090813
  9. DEPAKOTE [Concomitant]
  10. DILTIAZEM HYDROCHOLORIDE [Concomitant]
  11. LANTUS [Concomitant]
  12. CELEBREX [Concomitant]
  13. HYDROCODONE BITARTRATE AND ACETAMINOPHEN [Concomitant]
  14. DOMPERIDONE [Concomitant]
  15. GLUCAGON [Concomitant]
  16. KLONOPIN [Concomitant]
  17. MICARDIS [Concomitant]
  18. PROTONIX [Concomitant]
  19. AVAPRO [Concomitant]
  20. DIVALPROEX SODIUM [Concomitant]
  21. COLACE [Concomitant]
  22. DILANTIN [Concomitant]
  23. INSULIN [Concomitant]
  24. LORTAB [Concomitant]
  25. MIRALAX [Concomitant]
  26. MOVIPREP [Concomitant]
  27. NEURONTIN [Concomitant]
  28. TOPAMAX [Concomitant]
  29. ZOFRAN [Concomitant]
  30. ZYVVOX [Concomitant]
  31. CYMBALTA [Concomitant]
  32. MORPHINE [Concomitant]
  33. NORCO [Concomitant]
  34. VITAMIN D [Concomitant]

REACTIONS (40)
  - EMOTIONAL DISORDER [None]
  - DIABETES MELLITUS INADEQUATE CONTROL [None]
  - CHANGE OF BOWEL HABIT [None]
  - CONSTIPATION [None]
  - INCORRECT DRUG ADMINISTRATION DURATION [None]
  - COELIAC DISEASE [None]
  - MUSCLE SPASMS [None]
  - MUSCLE TWITCHING [None]
  - NEUROPATHY PERIPHERAL [None]
  - PNEUMONIA [None]
  - INFECTION [None]
  - DIABETIC COMA [None]
  - EXTRAPYRAMIDAL DISORDER [None]
  - DIVERTICULUM INTESTINAL [None]
  - FLAT AFFECT [None]
  - ECONOMIC PROBLEM [None]
  - DIABETIC GASTROPARESIS [None]
  - RESTLESS LEGS SYNDROME [None]
  - PERIPHERAL SENSORIMOTOR NEUROPATHY [None]
  - EPILEPSY [None]
  - GAIT DISTURBANCE [None]
  - ABDOMINAL PAIN [None]
  - HAEMORRHOIDS [None]
  - AUTONOMIC NEUROPATHY [None]
  - LETHARGY [None]
  - BEZOAR [None]
  - WEIGHT DECREASED [None]
  - DIABETIC KETOACIDOSIS [None]
  - NEURALGIA [None]
  - PAIN [None]
  - TARDIVE DYSKINESIA [None]
  - DYSKINESIA [None]
  - UNRESPONSIVE TO STIMULI [None]
  - NAUSEA [None]
  - CONVULSION [None]
  - VOMITING [None]
  - CHILLS [None]
  - SOMNOLENCE [None]
  - GASTROOESOPHAGEAL REFLUX DISEASE [None]
  - MENTAL STATUS CHANGES [None]
